FAERS Safety Report 7520299-2 (Version None)
Quarter: 2011Q2

REPORT INFORMATION
  Report Type: 
  Country: None (occurrence: None)
  Receive Date: 20110602
  Receipt Date: 20110418
  Transmission Date: 20111010
  Serious: Yes (Other)
  Sender: FDA-Public Use
  Company Number: US-BAYER-201015212NA

PATIENT
  Age: 39 Year
  Sex: Male
  Weight: 81 kg

DRUGS (76)
  1. MAGNEVIST [Suspect]
     Indication: NUCLEAR MAGNETIC RESONANCE IMAGING
     Dates: start: 20020917, end: 20020917
  2. MAGNEVIST [Suspect]
     Dates: start: 20060421, end: 20060421
  3. MAGNEVIST [Suspect]
  4. EPOGEN [Concomitant]
  5. PREDNISONE [Concomitant]
     Dosage: 10 MG DAILY
  6. NEURONTIN [Concomitant]
  7. PROTONIX [Concomitant]
  8. DECADRON [Concomitant]
  9. AVELOX [Concomitant]
  10. COMPAZINE [Concomitant]
     Dosage: UNK
     Dates: start: 20040225
  11. CLONIDINE [Concomitant]
     Dosage: 0.1 MG, BID
     Dates: start: 20070801
  12. QUININE SULFATE [Concomitant]
     Dosage: 325 MG, TIW
     Dates: start: 20070801
  13. MAGNEVIST [Suspect]
     Dates: start: 20060208, end: 20060208
  14. MAGNEVIST [Suspect]
     Dates: start: 20070131, end: 20070131
  15. HYDROMORPHONE HCL [Concomitant]
  16. KEPPRA [Concomitant]
     Dosage: 500 MG, HS
     Dates: start: 20070801
  17. VALIUM [Concomitant]
     Dosage: 5 MG, TID PRN
     Route: 048
     Dates: start: 20070801
  18. PHOSLO [Concomitant]
     Dosage: UNK
     Dates: start: 20070130
  19. LIDOCAINE HYDROCHLORIDE [Concomitant]
     Dosage: UNK UNK, PRN
     Route: 061
  20. MORPHINE [Concomitant]
     Dosage: UNK
     Dates: start: 20040225
  21. LABETALOL HYDROCHLORIDE [Concomitant]
  22. MAGNEVIST [Suspect]
     Indication: ANGIOGRAM
     Dates: start: 20040329, end: 20040329
  23. GADOLINIUM IN UNSPECIFIED DRUG [Suspect]
     Dates: start: 20030708, end: 20030708
  24. CLONIDINE HYDROCHLORIDE [Concomitant]
     Dosage: 0.3 MG/24 HR, WEEKLY
     Route: 062
  25. LASIX [Concomitant]
     Dosage: 40 MG, QD
     Dates: start: 20070801
  26. NORVASC [Concomitant]
     Dosage: 10 MG, HS
     Route: 048
     Dates: start: 20070801
  27. OXYCONTIN [Concomitant]
     Dosage: 2 TABS Q12 HR, BID
     Route: 048
  28. NARCAN [Concomitant]
  29. MAGNEVIST [Suspect]
     Dates: start: 20040806, end: 20040806
  30. MAGNEVIST [Suspect]
     Dates: start: 20060914, end: 20060914
  31. MAGNEVIST [Suspect]
     Dates: start: 20060930, end: 20060930
  32. MAGNEVIST [Suspect]
     Dates: start: 20070807, end: 20070807
  33. GADOLINIUM IN UNSPECIFIED DRUG [Suspect]
     Dates: start: 20040212, end: 20040212
  34. INSULIN PORCINE [Concomitant]
  35. NEPHRO-VITE [VITAMINS NOS] [Concomitant]
     Dosage: 1 TAB DAILY
     Dates: start: 20070801
  36. NORTRIPTYLINE HCL [Concomitant]
     Dosage: 25 MG, HS
     Route: 048
  37. MARINOL [Concomitant]
     Dosage: 5 MG, QID
  38. RITALIN [Concomitant]
     Dosage: 10 MG, TID
     Route: 048
  39. MAGNEVIST [Suspect]
     Dates: start: 20050324, end: 20050324
  40. MAGNEVIST [Suspect]
     Dates: start: 20051026, end: 20051026
  41. MAGNEVIST [Suspect]
     Dates: start: 20070627, end: 20070627
  42. NEXIUM [Concomitant]
     Dosage: 40 MG, QD
     Route: 048
  43. NEXIUM [Concomitant]
     Dosage: 40 MG, BID
     Dates: start: 20070801
  44. OXYCONTIN [Concomitant]
     Dosage: 80 MG, BID
     Dates: start: 20070801
  45. REGLAN [Concomitant]
     Dosage: 10 MG, QID
     Route: 048
     Dates: start: 20070801
  46. TRAZODONE HCL [Concomitant]
     Dosage: 100 MG (1.5 TABS), HS
     Route: 048
  47. METHADONE HCL [Concomitant]
  48. KAYEXALATE [Concomitant]
     Dosage: UNK UNK, PRN
     Route: 048
  49. MEGACE [Concomitant]
     Dosage: 40 MG/ML 10 CC, BID
     Route: 048
  50. MAGNEVIST [Suspect]
     Indication: NUCLEAR MAGNETIC RESONANCE IMAGING BRAIN
     Dates: start: 20030505, end: 20030505
  51. MAGNEVIST [Suspect]
     Dates: start: 20061114, end: 20061114
  52. MAGNEVIST [Suspect]
     Dates: start: 20070426, end: 20070426
  53. GADOLINIUM IN UNSPECIFIED DRUG [Suspect]
     Dates: start: 20030115, end: 20030115
  54. GADOLINIUM IN UNSPECIFIED DRUG [Suspect]
     Dates: start: 20030312, end: 20030312
  55. VENOFER [Concomitant]
  56. LASIX [Concomitant]
     Dosage: 40 MG, PRN
     Route: 048
  57. RENAGEL [Concomitant]
     Dosage: 600 MG, TID
     Route: 048
     Dates: start: 20070801
  58. REGLAN [Concomitant]
     Dosage: 10 MG TID
  59. LABETALOL HCL [Concomitant]
     Dosage: 300 MG TAB, BID
     Route: 048
  60. MAGNEVIST [Suspect]
     Dates: start: 20050929, end: 20050929
  61. MAGNEVIST [Suspect]
     Dates: start: 20060202, end: 20060202
  62. GADOLINIUM IN UNSPECIFIED DRUG [Suspect]
     Dates: start: 20030828, end: 20030828
  63. DIOVAN [Concomitant]
     Dosage: 160 MG, QD
     Route: 048
  64. TRAZODONE HCL [Concomitant]
     Dosage: 150 MG, HS
     Dates: start: 20070801
  65. SENSIPAR [Concomitant]
  66. DILAUDID [Concomitant]
  67. MARINOL [Concomitant]
     Dosage: 5 MG, QD
     Dates: start: 20070130
  68. ZEMPLAR [Concomitant]
     Dosage: 1 MCG, QD
     Dates: start: 20070801
  69. SYNTHROID [Concomitant]
     Dosage: .05 MG, UNK
     Dates: start: 20040225
  70. MARINOL [Concomitant]
  71. MAGNEVIST [Suspect]
     Dates: start: 20040804, end: 20040804
  72. DIOVAN [Concomitant]
     Dosage: 160 MG, BID
     Dates: start: 20070801
  73. OXYFAST [Concomitant]
     Dosage: 30 MG, Q 8 HR TID PRN
     Dates: start: 20070801
  74. ALTACE [Concomitant]
     Dosage: 5 MG, UNK
     Dates: start: 20040225
  75. LABETALOL HCL [Concomitant]
     Dosage: 600 MG, BID
     Dates: start: 20070801
  76. AMBIEN [Concomitant]
     Dosage: UNK
     Dates: start: 20040225

REACTIONS (22)
  - GENERALISED OEDEMA [None]
  - PETECHIAE [None]
  - PARAESTHESIA [None]
  - ECCHYMOSIS [None]
  - SKIN ULCER HAEMORRHAGE [None]
  - SKIN INDURATION [None]
  - NEPHROGENIC SYSTEMIC FIBROSIS [None]
  - SKIN HYPERPIGMENTATION [None]
  - PIGMENTATION DISORDER [None]
  - CONTUSION [None]
  - PRURITUS [None]
  - MOBILITY DECREASED [None]
  - RASH [None]
  - RASH MACULAR [None]
  - SKIN DISORDER [None]
  - PURPURA [None]
  - OEDEMA PERIPHERAL [None]
  - SKIN PLAQUE [None]
  - ASTHENIA [None]
  - PAIN IN EXTREMITY [None]
  - ARTHRALGIA [None]
  - PAIN [None]
